FAERS Safety Report 16991463 (Version 1)
Quarter: 2019Q4

REPORT INFORMATION
  Report Type: Spontaneous
  Country: CA (occurrence: CA)
  Receive Date: 20191104
  Receipt Date: 20191104
  Transmission Date: 20200122
  Serious: Yes (Other)
  Sender: FDA-Public Use
  Company Number: CA-ANIPHARMA-2019-CA-001596

PATIENT
  Age: 47 Year
  Sex: Female

DRUGS (3)
  1. ANASTROZOLE. [Suspect]
     Active Substance: ANASTROZOLE
     Indication: PRODUCT USED FOR UNKNOWN INDICATION
     Dosage: UNKNOWN
     Route: 048
  2. FASLODEX [Concomitant]
     Active Substance: FULVESTRANT
     Dosage: UNKNOWN
     Route: 065
  3. IBRANCE [Suspect]
     Active Substance: PALBOCICLIB
     Dosage: UNKNOWN
     Route: 048

REACTIONS (2)
  - Malignant neoplasm progression [Unknown]
  - Metastasis [Unknown]
